FAERS Safety Report 8781510 (Version 2)
Quarter: 2012Q4

REPORT INFORMATION
  Report Type: 
  Country: US (occurrence: US)
  Receive Date: 20120913
  Receipt Date: 20121026
  Transmission Date: 20130627
  Serious: Yes (Other)
  Sender: FDA-Public Use
  Company Number: US-PFIZER INC-2012224394

PATIENT
  Age: 53 Year
  Sex: Male
  Weight: 79.37 kg

DRUGS (3)
  1. ADVIL PM [Suspect]
     Indication: MUSCULOSKELETAL PAIN
     Dosage: UNK, as needed
     Route: 048
     Dates: start: 20120910, end: 20120910
  2. ADVIL PM [Suspect]
     Indication: BACK PAIN
  3. ADVIL PM [Suspect]
     Indication: INSOMNIA

REACTIONS (1)
  - Choking [Unknown]
